FAERS Safety Report 10111197 (Version 4)
Quarter: 2014Q2

REPORT INFORMATION
  Report Type: Spontaneous
  Country: US (occurrence: US)
  Receive Date: 20140425
  Receipt Date: 20140522
  Transmission Date: 20141212
  Serious: Yes (Hospitalization)
  Sender: FDA-Public Use
  Company Number: US-JNJFOC-20140413829

PATIENT
  Age: 87 Year
  Sex: Male
  Weight: 90.8 kg

DRUGS (14)
  1. XARELTO [Suspect]
     Indication: CEREBROVASCULAR ACCIDENT PROPHYLAXIS
     Route: 048
  2. XARELTO [Suspect]
     Indication: ATRIAL FIBRILLATION
     Route: 048
  3. ASA [Suspect]
     Indication: CORONARY ARTERY DISEASE
     Route: 048
  4. PACERONE [Interacting]
     Indication: ATRIAL FIBRILLATION
     Route: 065
  5. ZOCOR [Concomitant]
  6. FISH OIL [Concomitant]
     Route: 065
  7. MVI [Concomitant]
     Route: 065
  8. NORVASC [Concomitant]
  9. HUMALOG [Concomitant]
     Route: 065
  10. LOPRESSOR [Concomitant]
     Route: 065
  11. LASIX [Concomitant]
     Route: 065
  12. CHOLECALCIFEROL [Concomitant]
     Route: 065
  13. HUMALOG MIX [Concomitant]
     Route: 065
  14. FLONASE [Concomitant]
     Route: 065

REACTIONS (4)
  - Epistaxis [Recovering/Resolving]
  - Melaena [Recovering/Resolving]
  - Drug interaction [Unknown]
  - Haemorrhagic anaemia [Recovering/Resolving]
